FAERS Safety Report 17863036 (Version 1)
Quarter: 2020Q2

REPORT INFORMATION
  Report Type: Report from Study
  Country: US (occurrence: US)
  Receive Date: 20200605
  Receipt Date: 20200605
  Transmission Date: 20200714
  Serious: Yes (Hospitalization)
  Sender: FDA-Public Use
  Company Number: US-BIOGEN-2020BI00881892

PATIENT
  Sex: Female

DRUGS (1)
  1. TECFIDERA [Suspect]
     Active Substance: DIMETHYL FUMARATE
     Indication: MULTIPLE SCLEROSIS
     Route: 048
     Dates: start: 20140528

REACTIONS (6)
  - Brain oedema [Unknown]
  - Motor dysfunction [Unknown]
  - Viral infection [Unknown]
  - Gait inability [Unknown]
  - Aphasia [Unknown]
  - Demyelination [Unknown]
